FAERS Safety Report 11170034 (Version 2)
Quarter: 2015Q3

REPORT INFORMATION
  Report Type: Spontaneous
  Country: US (occurrence: US)
  Receive Date: 20150608
  Receipt Date: 20150728
  Transmission Date: 20151125
  Serious: Yes (Other)
  Sender: FDA-Public Use
  Company Number: US-AMGEN-USASP2015053947

PATIENT
  Age: 74 Year
  Sex: Female

DRUGS (2)
  1. ENBREL [Suspect]
     Active Substance: ETANERCEPT
     Indication: PSORIATIC ARTHROPATHY
     Dosage: ONCE WEEKLY FOR 3 WEEKS THEN OFF ONE WEEK THEN REPEAT
     Route: 065
     Dates: start: 201502, end: 201504
  2. METHOTREXATE [Concomitant]
     Active Substance: METHOTREXATE
     Dosage: EIGHT 2.5 MILLIGRAMS TABLETS ONCE WEEKLY

REACTIONS (3)
  - Procedural complication [Recovered/Resolved]
  - Vulvovaginal injury [Recovered/Resolved]
  - Vaginal haemorrhage [Unknown]

NARRATIVE: CASE EVENT DATE: 20150330
